FAERS Safety Report 8585941-6 (Version None)
Quarter: 2012Q3

REPORT INFORMATION
  Report Type: 
  Country: None (occurrence: None)
  Receive Date: 20120810
  Receipt Date: 20120806
  Transmission Date: 20120928
  Serious: Yes (Death, Other)
  Sender: FDA-Public Use
  Company Number: AU-PFIZER INC-2012161545

PATIENT
  Age: 14 Year
  Sex: Male

DRUGS (2)
  1. FLUCONAZOLE [Suspect]
  2. ERAXIS [Suspect]
     Indication: ASPERGILLOSIS

REACTIONS (2)
  - LIVER FUNCTION TEST ABNORMAL [None]
  - ASPERGILLOSIS [None]
